FAERS Safety Report 5336386-3 (Version None)
Quarter: 2007Q2

REPORT INFORMATION
  Report Type: 
  Country: None (occurrence: None)
  Receive Date: 20070523
  Receipt Date: 20070514
  Transmission Date: 20071010
  Serious: Yes (Hospitalization)
  Sender: FDA-Public Use
  Company Number: 2007BI010752

PATIENT
  Age: 46 Year
  Sex: Female
  Weight: 65.7716 kg

DRUGS (1)
  1. NATALIZUMAB [Suspect]
     Indication: DRUG USE FOR UNKNOWN INDICATION
     Dosage: 300 MG;QM;IV
     Route: 042
     Dates: start: 20070123, end: 20070201

REACTIONS (3)
  - CHOLELITHIASIS [None]
  - HERPES ZOSTER [None]
  - TRIGEMINAL NEURALGIA [None]
